FAERS Safety Report 25578675 (Version 1)
Quarter: 2025Q3

REPORT INFORMATION
  Report Type: Report from Study
  Country: PH (occurrence: PH)
  Receive Date: 20250718
  Receipt Date: 20250718
  Transmission Date: 20251020
  Serious: Yes (Hospitalization)
  Sender: ABBVIE
  Company Number: PH-ABBVIE-6376195

PATIENT
  Age: 47 Year
  Sex: Female

DRUGS (1)
  1. HUMIRA [Suspect]
     Active Substance: ADALIMUMAB
     Indication: Ankylosing spondylitis
     Route: 058
     Dates: start: 202408, end: 202506

REACTIONS (5)
  - Wound [Unknown]
  - Pruritus [Unknown]
  - Localised infection [Unknown]
  - Pain [Not Recovered/Not Resolved]
  - Scratch [Unknown]
